FAERS Safety Report 6384677-X (Version None)
Quarter: 2009Q4

REPORT INFORMATION
  Report Type: 
  Country: None (occurrence: None)
  Receive Date: 20091001
  Receipt Date: 20090810
  Transmission Date: 20100525
  Serious: No
  Sender: FDA-Public Use
  Company Number: US-TYCO HEALTHCARE/MALLINCKRODT-T200901536

PATIENT
  Sex: Male

DRUGS (1)
  1. TUSSICAPS EXTENDED-RELEASE [Suspect]

REACTIONS (1)
  - HALLUCINATION [None]
